FAERS Safety Report 5040499-3 (Version None)
Quarter: 2006Q2

REPORT INFORMATION
  Report Type: 
  Country: None (occurrence: None)
  Receive Date: 20060630
  Receipt Date: 20060508
  Transmission Date: 20061013
  Serious: Yes (Hospitalization)
  Sender: FDA-Public Use
  Company Number: US-ROCHE-447409

PATIENT
  Age: 45 Year
  Sex: Male
  Weight: 67.1 kg

DRUGS (2)
  1. PEGASYS [Suspect]
     Indication: HEPATITIS C
     Route: 058
     Dates: start: 20060127
  2. RIBAVIRIN [Suspect]
     Indication: HEPATITIS C
     Route: 048
     Dates: start: 20060127

REACTIONS (4)
  - ANXIETY [None]
  - BRONCHITIS [None]
  - DEPRESSION [None]
  - HYPERVENTILATION [None]
